FAERS Safety Report 5067898-8 (Version None)
Quarter: 2006Q3

REPORT INFORMATION
  Report Type: 
  Country: None (occurrence: None)
  Receive Date: 20060802
  Receipt Date: 20060724
  Transmission Date: 20061208
  Serious: Yes (Disabling, Other)
  Sender: FDA-Public Use
  Company Number: NSADSS2002023141

PATIENT
  Sex: Female
  Weight: 65.55 kg

DRUGS (14)
  1. REMICADE [Suspect]
     Route: 041
     Dates: start: 20020114, end: 20020503
  2. REMICADE [Suspect]
     Route: 041
     Dates: start: 20020114, end: 20020503
  3. REMICADE [Suspect]
     Route: 041
     Dates: start: 20020114, end: 20020503
  4. REMICADE [Suspect]
     Indication: RHEUMATOID ARTHRITIS
     Route: 041
     Dates: start: 20020114, end: 20020503
  5. TYLOX [Concomitant]
  6. ATIVAN [Concomitant]
  7. NEURONTIN [Concomitant]
  8. NEURONTIN [Concomitant]
  9. PREDNISONE [Concomitant]
  10. METHOTREXATE [Concomitant]
     Route: 030
  11. SULFASALAZINE [Concomitant]
  12. WELLBUTRIN [Concomitant]
  13. ARAVA [Concomitant]
     Dates: start: 20020319
  14. BEXTRA [Concomitant]

REACTIONS (10)
  - AFFECT LABILITY [None]
  - ARTHRITIS [None]
  - HEADACHE [None]
  - INTERSTITIAL LUNG DISEASE [None]
  - PLEURAL DISORDER [None]
  - PYREXIA [None]
  - ROAD TRAFFIC ACCIDENT [None]
  - SCLERODERMA [None]
  - SKIN HYPERPIGMENTATION [None]
  - WHITE BLOOD CELL COUNT ABNORMAL [None]
